FAERS Safety Report 18199227 (Version 1)
Quarter: 2020Q3

REPORT INFORMATION
  Report Type: Spontaneous
  Country: US (occurrence: US)
  Receive Date: 20200826
  Receipt Date: 20200826
  Transmission Date: 20201103
  Serious: Yes (Hospitalization)
  Sender: FDA-Public Use
  Company Number: US-VERTEX PHARMACEUTICALS-2020-016960

PATIENT
  Age: 51 Year
  Sex: Female
  Weight: 40 kg

DRUGS (20)
  1. COMBIVENT RESPIMAT [Concomitant]
     Active Substance: ALBUTEROL SULFATE\IPRATROPIUM BROMIDE
  2. IPRATROPIUM/ALBUTEROL [Concomitant]
     Active Substance: ALBUTEROL\IPRATROPIUM
  3. AZITHROMYCIN ANHYDROUS. [Concomitant]
     Active Substance: AZITHROMYCIN ANHYDROUS
     Dosage: TABLET
  4. MEROPENEM. [Concomitant]
     Active Substance: MEROPENEM
     Dosage: UNK
  5. CAYSTON [Concomitant]
     Active Substance: AZTREONAM
     Dosage: VIAL?NEB
  6. ALPRAZOLAM. [Concomitant]
     Active Substance: ALPRAZOLAM
     Dosage: TABLET
  7. HYPERSAL [Concomitant]
     Active Substance: SODIUM CHLORIDE
     Dosage: VIAL?NEB
  8. LORAZEPAM. [Concomitant]
     Active Substance: LORAZEPAM
     Dosage: TABLET
  9. VITAMIN D3 [Concomitant]
     Active Substance: CHOLECALCIFEROL
     Dosage: TABLET
  10. VENTOLIN HFA [Concomitant]
     Active Substance: ALBUTEROL SULFATE
     Dosage: HFA AER AD
  11. URSODIOL. [Concomitant]
     Active Substance: URSODIOL
     Dosage: TABLET
  12. PREDNISONE. [Concomitant]
     Active Substance: PREDNISONE
     Dosage: TABLET
  13. TOBRAMYCIN. [Concomitant]
     Active Substance: TOBRAMYCIN
  14. MAGNESIUM [Concomitant]
     Active Substance: MAGNESIUM
     Dosage: TABLET
  15. CALCIUM [Concomitant]
     Active Substance: CALCIUM
     Dosage: TABLET
  16. CYCLOBENZAPRINE HCL [Concomitant]
     Active Substance: CYCLOBENZAPRINE HYDROCHLORIDE
     Dosage: TABLET
  17. BUDESONIDE. [Concomitant]
     Active Substance: BUDESONIDE
     Dosage: AMPUL?NEB
  18. NACL [Concomitant]
     Active Substance: SODIUM CHLORIDE
  19. TRIKAFTA [Suspect]
     Active Substance: ELEXACAFTOR\IVACAFTOR\TEZACAFTOR
     Indication: CYSTIC FIBROSIS
     Dosage: 2 TABLETS (100 MG ELEXACAFTOR/ 50 MG TEZACAFTOR/ 75 MG IVACAFTOR) AM 1 TABLET (150MG IVACAFTOR) PM
     Route: 048
  20. ACETYLCYSTEINE. [Concomitant]
     Active Substance: ACETYLCYSTEINE
     Dosage: VIAL

REACTIONS (1)
  - Infection [Not Recovered/Not Resolved]

NARRATIVE: CASE EVENT DATE: 202008
